FAERS Safety Report 23993176 (Version 1)
Quarter: 2024Q2

REPORT INFORMATION
  Report Type: Other
  Country: US (occurrence: US)
  Receive Date: 20240620
  Receipt Date: 20240620
  Transmission Date: 20240715
  Serious: Yes (Other)
  Sender: FDA-Public Use
  Company Number: US-SERB S.A.S.-2158342

PATIENT
  Age: 41 Year
  Sex: Male

DRUGS (5)
  1. VISTOGARD [Suspect]
     Active Substance: URIDINE TRIACETATE
     Indication: Diarrhoea
     Route: 048
  2. VISTOGARD [Suspect]
     Active Substance: URIDINE TRIACETATE
     Indication: Chemotherapy toxicity attenuation
  3. VISTOGARD [Suspect]
     Active Substance: URIDINE TRIACETATE
     Indication: Toxicity to various agents
  4. CAPECITABINE [Suspect]
     Active Substance: CAPECITABINE
     Route: 065
  5. OXALIPLATIN [Suspect]
     Active Substance: OXALIPLATIN
     Route: 065

REACTIONS (4)
  - Hypokalaemia [Unknown]
  - Underdose [Unknown]
  - Thrombocytopenia [Unknown]
  - Neutropenia [Unknown]
